FAERS Safety Report 25861580 (Version 1)
Quarter: 2025Q3

REPORT INFORMATION
  Report Type: Other
  Country: EU (occurrence: EU)
  Receive Date: 20250930
  Receipt Date: 20250930
  Transmission Date: 20251021
  Serious: Yes (Life-Threatening)
  Sender: BIOCON
  Company Number: None

PATIENT

DRUGS (3)
  1. ADALIMUMAB [Suspect]
     Active Substance: ADALIMUMAB
     Indication: Psoriatic arthropathy
     Route: 058
     Dates: start: 20250829, end: 20250829
  2. ADALIMUMAB [Suspect]
     Active Substance: ADALIMUMAB
  3. METHOTREXATE [Concomitant]
     Active Substance: METHOTREXATE
     Indication: Product used for unknown indication
     Dosage: 20 MILLIGRAM, QWEEK, INJECTABLE SOLUTION
     Route: 065

REACTIONS (2)
  - Malaise [Recovered/Resolved]
  - Dyspnoea [Recovered/Resolved]

NARRATIVE: CASE EVENT DATE: 20250829
